FAERS Safety Report 22203319 (Version 1)
Quarter: 2023Q2

REPORT INFORMATION
  Report Type: Other
  Country: CA (occurrence: CA)
  Receive Date: 20230412
  Receipt Date: 20230412
  Transmission Date: 20230722
  Serious: Yes (Other)
  Sender: FDA-Public Use
  Company Number: CA-APOTEX-2023AP006780

PATIENT
  Age: 79 Year
  Sex: Female

DRUGS (3)
  1. FULVESTRANT [Suspect]
     Active Substance: FULVESTRANT
     Indication: Breast cancer metastatic
     Dosage: UNK
     Route: 065
  2. EXEMESTANE [Suspect]
     Active Substance: EXEMESTANE
     Indication: Breast cancer metastatic
     Dosage: UNK
     Route: 065
  3. AFINITOR [Suspect]
     Active Substance: EVEROLIMUS
     Indication: Breast cancer metastatic
     Dosage: UNK
     Route: 048

REACTIONS (1)
  - Toxicity to various agents [Unknown]
